FAERS Safety Report 4537163-3 (Version None)
Quarter: 2004Q4

REPORT INFORMATION
  Report Type: 
  Country: None (occurrence: None)
  Receive Date: 20041223
  Receipt Date: 20041123
  Transmission Date: 20050328
  Serious: Yes (Other)
  Sender: FDA-Public Use
  Company Number: PHEH2004US12693

PATIENT
  Sex: 0

DRUGS (1)
  1. GLEEVEC [Suspect]
     Dosage: UNK,UNK

REACTIONS (1)
  - BREAST CANCER [None]
